FAERS Safety Report 8443112-8 (Version None)
Quarter: 2012Q2

REPORT INFORMATION
  Report Type: 
  Country: None (occurrence: None)
  Receive Date: 20120615
  Receipt Date: 20120608
  Transmission Date: 20120825
  Serious: Yes (Other)
  Sender: FDA-Public Use
  Company Number: GB-ABBOTT-12P-167-0944634-00

PATIENT
  Sex: Male

DRUGS (5)
  1. PREZISTA [Suspect]
  2. TRUVADA [Concomitant]
     Indication: PRODUCT USED FOR UNKNOWN INDICATION
     Dosage: UNSPECIFIED
     Route: 065
  3. RITONAVIR [Suspect]
     Indication: PRODUCT USED FOR UNKNOWN INDICATION
     Dosage: UNSPECIFIED
     Route: 065
  4. RITONAVIR [Suspect]
  5. PREZISTA [Suspect]
     Indication: HIV INFECTION
     Dosage: UNSPECIFIED DOSE
     Route: 048

REACTIONS (3)
  - C-REACTIVE PROTEIN INCREASED [None]
  - POLYARTHRITIS [None]
  - ERYTHEMA NODOSUM [None]
